FAERS Safety Report 17140197 (Version 2)
Quarter: 2020Q1

REPORT INFORMATION
  Report Type: Report from Study
  Country: GB (occurrence: GB)
  Receive Date: 20191211
  Receipt Date: 20200316
  Transmission Date: 20200409
  Serious: Yes (Other)
  Sender: FDA-Public Use
  Company Number: NVSC2019GB062010

PATIENT
  Sex: Male

DRUGS (1)
  1. COSENTYX [Suspect]
     Active Substance: SECUKINUMAB
     Indication: PSORIASIS
     Dosage: 300 MG, QMO
     Route: 058

REACTIONS (7)
  - Pallor [Unknown]
  - Haemorrhage [Unknown]
  - Full blood count decreased [Unknown]
  - Myocardial infarction [Unknown]
  - Blood iron decreased [Unknown]
  - Blood urine present [Unknown]
  - Asthenia [Unknown]
